FAERS Safety Report 9884192 (Version 1)
Quarter: 2014Q1

REPORT INFORMATION
  Report Type: Spontaneous
  Country: US (occurrence: None)
  Receive Date: 20140207
  Receipt Date: 20140207
  Transmission Date: 20141002
  Serious: No
  Sender: FDA-Public Use
  Company Number: None

PATIENT
  Age: 35 Year
  Sex: Male
  Weight: 83.92 kg

DRUGS (1)
  1. CREST PRO-HEALTH [Suspect]
     Indication: DENTAL DISORDER PROPHYLAXIS
     Dates: start: 20140205, end: 20140205

REACTIONS (3)
  - Ageusia [None]
  - Hypoaesthesia oral [None]
  - Gingival bleeding [None]
